FAERS Safety Report 7366918-5 (Version None)
Quarter: 2011Q1

REPORT INFORMATION
  Report Type: 
  Country: None (occurrence: None)
  Receive Date: 20110322
  Receipt Date: 20110311
  Transmission Date: 20110831
  Serious: Yes (Hospitalization)
  Sender: FDA-Public Use
  Company Number: B0703552A

PATIENT
  Age: 42 Month
  Sex: Female
  Weight: 12 kg

DRUGS (1)
  1. ZINACEF [Suspect]
     Dosage: .75G PER DAY
     Route: 042
     Dates: start: 20110224, end: 20110224

REACTIONS (6)
  - LARYNGOSPASM [None]
  - CHILLS [None]
  - BRONCHOSPASM [None]
  - DYSPNOEA [None]
  - RESPIRATORY ACIDOSIS [None]
  - BODY TEMPERATURE INCREASED [None]
